FAERS Safety Report 23263969 (Version 6)
Quarter: 2025Q1

REPORT INFORMATION
  Report Type: Spontaneous
  Country: US (occurrence: US)
  Receive Date: 20231205
  Receipt Date: 20250204
  Transmission Date: 20250409
  Serious: No
  Sender: SANOFI AVENTIS
  Company Number: US-SA-SAC20231128000983

PATIENT
  Age: 76 Year
  Sex: Male

DRUGS (18)
  1. DUPIXENT [Suspect]
     Active Substance: DUPILUMAB
     Indication: Diabetes mellitus
     Dosage: 300 MG, QOW
     Route: 058
     Dates: start: 20241120
  2. DUPIXENT [Suspect]
     Active Substance: DUPILUMAB
     Indication: Dermatitis atopic
     Dosage: 300 MG, QOW
     Route: 058
     Dates: end: 202404
  3. CLOTRIMAZOLE [Concomitant]
     Active Substance: CLOTRIMAZOLE
  4. ELIQUIS [Concomitant]
     Active Substance: APIXABAN
  5. FINASTERIDE [Concomitant]
     Active Substance: FINASTERIDE
  6. LANTUS SOLOSTAR [Concomitant]
     Active Substance: INSULIN GLARGINE
  7. TOBRAMYCIN [Concomitant]
     Active Substance: TOBRAMYCIN
  8. TOBRAMYCIN [Concomitant]
     Active Substance: TOBRAMYCIN
  9. TRULICITY [Concomitant]
     Active Substance: DULAGLUTIDE
  10. TRIAMCINOLONE [Concomitant]
     Active Substance: TRIAMCINOLONE
  11. DESOXIMETASONE [Concomitant]
     Active Substance: DESOXIMETASONE
  12. OMEGA-3 FATTY ACIDS [Concomitant]
     Active Substance: OMEGA-3 FATTY ACIDS
  13. KETOCONAZOLE [Concomitant]
     Active Substance: KETOCONAZOLE
  14. AMLODIPINE BESYLATE [Concomitant]
     Active Substance: AMLODIPINE BESYLATE
  15. ANASTROZOLE [Concomitant]
     Active Substance: ANASTROZOLE
  16. POTASSIUM CITRATE [Concomitant]
     Active Substance: POTASSIUM CITRATE
  17. CARVEDILOL [Concomitant]
     Active Substance: CARVEDILOL
  18. TESTOSTERONE [Concomitant]
     Active Substance: TESTOSTERONE

REACTIONS (11)
  - Blood glucose increased [Not Recovered/Not Resolved]
  - Dry skin [Not Recovered/Not Resolved]
  - Injection site discolouration [Not Recovered/Not Resolved]
  - Throat irritation [Unknown]
  - Pruritus [Not Recovered/Not Resolved]
  - Nasopharyngitis [Unknown]
  - Injection site swelling [Not Recovered/Not Resolved]
  - Product use in unapproved indication [Unknown]
  - Injection site pain [Unknown]
  - Eye pruritus [Unknown]
  - Inappropriate schedule of product administration [Unknown]

NARRATIVE: CASE EVENT DATE: 20240101
